FAERS Safety Report 4412317-5 (Version None)
Quarter: 2004Q2

REPORT INFORMATION
  Report Type: 
  Country: None (occurrence: None)
  Receive Date: 20040630
  Receipt Date: 20040304
  Transmission Date: 20050107
  Serious: No
  Sender: FDA-Public Use
  Company Number: 04P-163-0252314-00

PATIENT
  Age: 54 Year
  Sex: Female
  Weight: 101.1521 kg

DRUGS (8)
  1. HUMIRA [Suspect]
     Indication: RHEUMATOID ARTHRITIS
     Dosage: 40 MG, 1 IN 2 WK, SUBCUTANEOUS
     Route: 058
     Dates: start: 20030717
  2. LEVETIRACETAM [Concomitant]
  3. VALPROATE SODIUM [Concomitant]
  4. PRIMIDONE [Concomitant]
  5. CENTRUM [Concomitant]
  6. FLUOXETINE HCL [Concomitant]
  7. METHADONE HCL [Concomitant]
  8. ROFECOXIB [Concomitant]

REACTIONS (1)
  - CONTUSION [None]
